FAERS Safety Report 6343852-0 (Version None)
Quarter: 2009Q3

REPORT INFORMATION
  Report Type: 
  Country: None (occurrence: None)
  Receive Date: 20090908
  Receipt Date: 20090904
  Transmission Date: 20100115
  Serious: Yes (Death, Other)
  Sender: FDA-Public Use
  Company Number: PHHY2009CA31232

PATIENT
  Sex: Male

DRUGS (2)
  1. TASIGNA [Suspect]
     Indication: CHRONIC MYELOID LEUKAEMIA
     Dosage: 400 MG, BID
     Route: 048
     Dates: start: 20081101
  2. ALLOPURINOL [Concomitant]

REACTIONS (2)
  - BLOOD BILIRUBIN INCREASED [None]
  - MALIGNANT NEOPLASM PROGRESSION [None]
